FAERS Safety Report 16804467 (Version 2)
Quarter: 2019Q3

REPORT INFORMATION
  Report Type: Spontaneous
  Country: US (occurrence: US)
  Receive Date: 20190913
  Receipt Date: 20190919
  Transmission Date: 20191005
  Serious: No
  Sender: FDA-Public Use
  Company Number: US-PFIZER INC-2019395793

PATIENT
  Sex: Male

DRUGS (4)
  1. LENVIMA [Suspect]
     Active Substance: LENVATINIB
     Indication: HEPATOCELLULAR CARCINOMA
     Dosage: 8 MG, DAILY
     Route: 048
     Dates: start: 20190212, end: 20190312
  2. GABAPENTIN. [Suspect]
     Active Substance: GABAPENTIN
     Indication: NEUROPATHY PERIPHERAL
     Dosage: UNK
  3. LENVIMA [Suspect]
     Active Substance: LENVATINIB
     Dosage: 12 MG, DAILY
     Route: 048
     Dates: start: 20190312, end: 201907
  4. LENVIMA [Suspect]
     Active Substance: LENVATINIB
     Dosage: 12 MG, DAILY
     Route: 048
     Dates: start: 201907

REACTIONS (10)
  - Sluggishness [Not Recovered/Not Resolved]
  - Gingival bleeding [Not Recovered/Not Resolved]
  - Appetite disorder [Recovering/Resolving]
  - Stomatitis [Unknown]
  - Off label use [Unknown]
  - Oral pain [Not Recovered/Not Resolved]
  - Dysphonia [Recovered/Resolved]
  - Asthenia [Unknown]
  - Oral mucosal blistering [Not Recovered/Not Resolved]
  - Product use in unapproved indication [Unknown]
